FAERS Safety Report 9140770 (Version 1)
Quarter: 2013Q1

REPORT INFORMATION
  Report Type: Spontaneous
  Country: US (occurrence: US)
  Receive Date: 20130305
  Receipt Date: 20130305
  Transmission Date: 20140127
  Serious: Yes (Hospitalization)
  Sender: FDA-Public Use
  Company Number: US-ENDO PHARMACEUTICALS INC.-OPIR20100023

PATIENT
  Sex: Female

DRUGS (3)
  1. OPANA [Suspect]
     Indication: BREAKTHROUGH PAIN
     Dosage: 10 MG
     Route: 048
     Dates: start: 201003
  2. OPANA ER [Suspect]
     Indication: PAIN
     Dosage: 20 MG
     Route: 048
     Dates: start: 201003
  3. VITAMIN B12 [Concomitant]
     Indication: PRODUCT USED FOR UNKNOWN INDICATION
     Dosage: UNK

REACTIONS (4)
  - Coma [Recovered/Resolved]
  - Local swelling [Not Recovered/Not Resolved]
  - Sedation [Recovered/Resolved]
  - Cyanosis [Not Recovered/Not Resolved]
